FAERS Safety Report 8018904-X (Version None)
Quarter: 2012Q1

REPORT INFORMATION
  Report Type: 
  Country: None (occurrence: None)
  Receive Date: 20120103
  Receipt Date: 20111229
  Transmission Date: 20120608
  Serious: Yes (Other)
  Sender: FDA-Public Use
  Company Number: US-PFIZER INC-2011315930

PATIENT
  Age: 75 Year
  Sex: Female
  Weight: 36.74 kg

DRUGS (11)
  1. LEXAPRO [Suspect]
     Dosage: 7.5 MG, 1X/DAY
     Route: 048
     Dates: start: 20110101, end: 20111104
  2. PROTONIX [Concomitant]
     Dosage: UNK
  3. MIRALAX [Concomitant]
     Dosage: UNK
  4. LEXAPRO [Suspect]
     Dosage: 10 MG, 1X/DAY
     Route: 048
     Dates: start: 20111105, end: 20111201
  5. MULTI-VITAMINS [Concomitant]
     Dosage: UNK
  6. PROCARDIA XL [Suspect]
     Indication: HYPERTENSION
     Dosage: UNK
     Dates: end: 20111201
  7. VITAMIN D [Concomitant]
     Dosage: UNK
  8. LEXAPRO [Suspect]
     Indication: GENERALISED ANXIETY DISORDER
     Dosage: 2.5 MG, 1X/DAY
     Route: 048
     Dates: start: 20111001, end: 20110101
  9. REMERON [Suspect]
     Dosage: 15 MG, 1X/DAY
     Dates: start: 20111209, end: 20111209
  10. LEXAPRO [Suspect]
     Dosage: 5 MG, 1X/DAY
     Route: 048
     Dates: start: 20110101, end: 20110101
  11. LEXAPRO [Suspect]
     Dosage: 15 MG, 1X/DAY
     Route: 048
     Dates: start: 20111201

REACTIONS (4)
  - HALLUCINATION [None]
  - DRUG INEFFECTIVE [None]
  - FATIGUE [None]
  - DRUG INTERACTION [None]
